FAERS Safety Report 17584912 (Version 2)
Quarter: 2020Q2

REPORT INFORMATION
  Report Type: Report from Study
  Country: US (occurrence: US)
  Receive Date: 20200326
  Receipt Date: 20200401
  Transmission Date: 20200713
  Serious: Yes (Hospitalization)
  Sender: FDA-Public Use
  Company Number: US-VERTEX PHARMACEUTICALS-2020-006509

PATIENT
  Sex: Female

DRUGS (10)
  1. POLYETHYLENE GLYCOL [Concomitant]
     Active Substance: POLYETHYLENE GLYCOLS
  2. PULMOZYME [Concomitant]
     Active Substance: DORNASE ALFA
  3. ALBUTEROL [SALBUTAMOL] [Concomitant]
     Active Substance: ALBUTEROL
  4. VITAMIN D3 [Concomitant]
     Active Substance: CHOLECALCIFEROL
  5. ASMANEX HFA [Concomitant]
     Active Substance: MOMETASONE FUROATE
  6. CEFDINIR. [Concomitant]
     Active Substance: CEFDINIR
  7. FLUTICASONE. [Concomitant]
     Active Substance: FLUTICASONE
  8. SULFAMETHOXAZOLE;TRIMETHOPRIM [Concomitant]
     Active Substance: SULFAMETHOXAZOLE\TRIMETHOPRIM
  9. KALYDECO [Suspect]
     Active Substance: IVACAFTOR
     Indication: CYSTIC FIBROSIS
     Dosage: 150 MG, BID
     Route: 048
     Dates: start: 20141002
  10. LORATADINE. [Concomitant]
     Active Substance: LORATADINE

REACTIONS (2)
  - Product dose omission [Unknown]
  - Cough [Not Recovered/Not Resolved]

NARRATIVE: CASE EVENT DATE: 2020
